FAERS Safety Report 7488433-0 (Version None)
Quarter: 2011Q2

REPORT INFORMATION
  Report Type: 
  Country: None (occurrence: None)
  Receive Date: 20110518
  Receipt Date: 20110516
  Transmission Date: 20111010
  Serious: Yes (Other)
  Sender: FDA-Public Use
  Company Number: BR-PFIZER INC-2011104487

PATIENT
  Age: 50 Year
  Sex: Female

DRUGS (4)
  1. ALPRAZOLAM [Suspect]
     Dosage: 0.5 MG, UNK
     Route: 048
     Dates: start: 20110513
  2. LIPITOR [Concomitant]
     Dosage: 10MG
  3. ZYRTEC [Suspect]
     Dosage: UNK
  4. ATACAND [Concomitant]
     Indication: HYPERTENSION
     Dosage: 8/12.5MG

REACTIONS (4)
  - PRURITUS [None]
  - RASH MACULAR [None]
  - SLEEP DISORDER [None]
  - HYPERSENSITIVITY [None]
